FAERS Safety Report 9514567 (Version 1)
Quarter: 2013Q1

REPORT INFORMATION
  Report Type: Spontaneous
  Country: US (occurrence: None)
  Receive Date: 20130305
  Receipt Date: 20130305
  Transmission Date: 20140127
  Serious: Yes (Life-Threatening, Hospitalization, Other)
  Sender: FDA-Public Use
  Company Number: 163-21880-12091287

PATIENT
  Age: 76 Year
  Sex: Male
  Weight: 71.67 kg

DRUGS (11)
  1. REVLIMID [Suspect]
     Indication: PLASMA CELL MYELOMA
     Dosage: 25 MG, 1 IN 1 D. PO
     Route: 048
     Dates: start: 20120703
  2. ASPIRIN (ACETYLSALCYLIC ACID) [Concomitant]
  3. CLOTRIMAZOLE (CLOTRIMAZOLE) [Concomitant]
  4. OMEPRAZOLE (OMEPRAZOLE) [Concomitant]
  5. KCL (POTASSIUM CHLORIDE) [Concomitant]
  6. ACETAMINOPHEN WITH HYDROCODONE (PROCET/USA/) [Concomitant]
  7. CARAFATE (SUCRALFATE) [Concomitant]
  8. PSYLLIUM (PSYLIUM) (POWDER) [Concomitant]
  9. CALCIUM + VIT D (CALCIUM + VIT D) [Concomitant]
  10. ZOCOR (SIMVASTATIN) [Concomitant]
  11. DOXAZOSIN (DOXAZOSIN) [Concomitant]

REACTIONS (2)
  - Pneumonitis [None]
  - Pulmonary embolism [None]
